FAERS Safety Report 8043556-2 (Version None)
Quarter: 2012Q1

REPORT INFORMATION
  Report Type: 
  Country: None (occurrence: None)
  Receive Date: 20120112
  Receipt Date: 20120110
  Transmission Date: 20120608
  Serious: Yes (Other)
  Sender: FDA-Public Use
  Company Number: US-ROCHE-1019469

PATIENT
  Sex: Female

DRUGS (10)
  1. ASPIRIN [Concomitant]
     Route: 048
  2. PRILOSEC [Concomitant]
  3. VALCYTE [Suspect]
     Indication: RENAL TRANSPLANT
     Route: 065
     Dates: start: 20080820
  4. MYCOPHENOLATE MOFETIL (CELLCEPT) [Suspect]
     Indication: RENAL TRANSPLANT
     Route: 065
     Dates: start: 20080820
  5. NEORAL [Concomitant]
  6. FOLIC ACID [Concomitant]
  7. BACTRIM [Suspect]
     Indication: PRODUCT USED FOR UNKNOWN INDICATION
     Route: 065
  8. SODIUM BICARBONATE [Concomitant]
  9. PREDNISONE TAB [Concomitant]
  10. SIMVASTATIN [Concomitant]

REACTIONS (8)
  - PAIN IN EXTREMITY [None]
  - BLOOD CALCIUM INCREASED [None]
  - MUSCULAR WEAKNESS [None]
  - ARTHRALGIA [None]
  - FEMUR FRACTURE [None]
  - BLOOD PARATHYROID HORMONE INCREASED [None]
  - PATELLA FRACTURE [None]
  - SKIN FISSURES [None]
